FAERS Safety Report 4499234-X (Version None)
Quarter: 2004Q3

REPORT INFORMATION
  Report Type: 
  Country: None (occurrence: None)
  Receive Date: 20040928
  Receipt Date: 20040805
  Transmission Date: 20050211
  Serious: No
  Sender: FDA-Public Use
  Company Number: 04P-163-0269370-00

PATIENT
  Age: 72 Year
  Sex: Female
  Weight: 76.2043 kg

DRUGS (8)
  1. HUMIRA [Suspect]
     Indication: RHEUMATOID ARTHRITIS
     Dosage: 40 MG, 1 IN 2 WK, SUBCUTANEOUS
     Route: 058
     Dates: start: 20040625
  2. CELECOXIB [Concomitant]
  3. PREDNISONE [Concomitant]
  4. CRESTOR [Concomitant]
  5. IRBESARTAN [Concomitant]
  6. LANSOPRAZOLE [Concomitant]
  7. M.V.I. [Concomitant]
  8. PEDIACARE COUGH-COLD [Concomitant]

REACTIONS (3)
  - ARTHRALGIA [None]
  - DRUG EFFECT DECREASED [None]
  - INJECTION SITE STINGING [None]
